FAERS Safety Report 4497340-7 (Version None)
Quarter: 2004Q4

REPORT INFORMATION
  Report Type: 
  Country: None (occurrence: None)
  Receive Date: 20041110
  Receipt Date: 20040804
  Transmission Date: 20050328
  Serious: Yes (Death, Hospitalization)
  Sender: FDA-Public Use
  Company Number: ES-BRISTOL-MYERS SQUIBB COMPANY-12662979

PATIENT
  Age: 58 Year
  Sex: Male

DRUGS (2)
  1. CETUXIMAB [Suspect]
     Indication: COLORECTAL CANCER
     Dosage: MOST RECENT INFUSION 16-JUL-2004-DISCONTINUED 23-JUL-2004
     Route: 041
     Dates: start: 20040514, end: 20040716
  2. IRINOTECAN [Suspect]
     Indication: COLORECTAL CANCER
     Dosage: 3RD INFUSION: 16-JUL-2004,THERAPY DISCONTINUED 23-JUL-2004
     Route: 042
     Dates: start: 20040514, end: 20040716

REACTIONS (4)
  - COLORECTAL CANCER METASTATIC [None]
  - DIARRHOEA [None]
  - MALIGNANT NEOPLASM PROGRESSION [None]
  - MUCOSAL INFLAMMATION [None]
